FAERS Safety Report 10944844 (Version 1)
Quarter: 2015Q1

REPORT INFORMATION
  Report Type: Spontaneous
  Country: US (occurrence: US)
  Receive Date: 20150323
  Receipt Date: 20150323
  Transmission Date: 20150721
  Serious: No
  Sender: FDA-Public Use
  Company Number: US-TEVA-542174USA

PATIENT
  Sex: Female

DRUGS (1)
  1. CABERGOLINE. [Suspect]
     Active Substance: CABERGOLINE
     Indication: HYPERPROLACTINAEMIA

REACTIONS (2)
  - Drug ineffective [Unknown]
  - Blood prolactin increased [Unknown]
